FAERS Safety Report 15567130 (Version 1)
Quarter: 2018Q4

REPORT INFORMATION
  Report Type: Spontaneous
  Country: IT (occurrence: IT)
  Receive Date: 20181030
  Receipt Date: 20181030
  Transmission Date: 20190205
  Serious: Yes (Hospitalization)
  Sender: FDA-Public Use
  Company Number: IT-JNJFOC-20181042120

PATIENT
  Age: 89 Year
  Sex: Female

DRUGS (9)
  1. CRESTOR [Concomitant]
     Active Substance: ROSUVASTATIN CALCIUM
     Route: 065
  2. XARELTO [Suspect]
     Active Substance: RIVAROXABAN
     Indication: ATRIAL FIBRILLATION
     Route: 048
     Dates: start: 20180401, end: 20180918
  3. ALMARYTM [Concomitant]
     Active Substance: FLECAINIDE ACETATE
     Route: 065
  4. ATENOLOL. [Concomitant]
     Active Substance: ATENOLOL
     Route: 065
  5. PANTORC [Concomitant]
     Active Substance: PANTOPRAZOLE SODIUM
     Route: 065
  6. LASIX [Concomitant]
     Active Substance: FUROSEMIDE
     Route: 065
  7. PAROXETINE. [Concomitant]
     Active Substance: PAROXETINE
     Route: 065
  8. XANAX [Concomitant]
     Active Substance: ALPRAZOLAM
     Route: 065
  9. REAPTAN [Concomitant]
     Active Substance: AMLODIPINE BESYLATE\PERINDOPRIL ARGININE
     Route: 065

REACTIONS (3)
  - Anaemia [Unknown]
  - Asthenia [Unknown]
  - Sopor [Unknown]

NARRATIVE: CASE EVENT DATE: 20180918
